FAERS Safety Report 9171012 (Version 2)
Quarter: 2013Q2

REPORT INFORMATION
  Report Type: Spontaneous
  Country: IT (occurrence: IT)
  Receive Date: 20130319
  Receipt Date: 20130422
  Transmission Date: 20140414
  Serious: Yes (Hospitalization)
  Sender: FDA-Public Use
  Company Number: IT-BRISTOL-MYERS SQUIBB COMPANY-17466681

PATIENT
  Age: 61 Year
  Sex: Male

DRUGS (6)
  1. COUMADIN TABS 5 MG [Suspect]
     Indication: ATRIAL FIBRILLATION
     Route: 048
     Dates: start: 20000101, end: 20130215
  2. OMEPRAZOLE [Concomitant]
     Route: 048
  3. ALDACTONE [Concomitant]
     Dosage: TAB
     Route: 048
  4. NORVASC [Concomitant]
     Dosage: TAB
     Route: 048
  5. LASIX [Concomitant]
     Dosage: 1DF:6 UNITS,25MG TABS
     Route: 048
  6. ENAPREN [Concomitant]
     Indication: HYPERTENSION
     Dosage: TAB
     Route: 048

REACTIONS (1)
  - Anaemia [Recovered/Resolved]
